FAERS Safety Report 8695039 (Version 3)
Quarter: 2012Q4

REPORT INFORMATION
  Report Type: 
  Country: JP (occurrence: JP)
  Receive Date: 20120731
  Receipt Date: 20121217
  Transmission Date: 20130627
  Serious: Yes (Other)
  Sender: FDA-Public Use
  Company Number: JP-009507513-1207JPN010212

PATIENT
  Age: 68 Year
  Sex: Male
  Weight: 84 kg

DRUGS (25)
  1. PEGINTRON [Suspect]
     Indication: CHRONIC HEPATITIS C
     Dosage: 1.5 Microgram per kilogram, qw
     Route: 058
     Dates: start: 20120515, end: 20120528
  2. PEGINTRON [Suspect]
     Dosage: 0.7 Microgram per kilogram, qw
     Route: 058
     Dates: start: 20120604, end: 20120730
  3. PEGINTRON [Suspect]
     Dosage: 0.8 Microgram per kilogram, qw
     Route: 058
     Dates: start: 20120806
  4. PEGINTRON [Suspect]
     Dosage: 1.5 Microgram per kilogram, qw
     Route: 058
     Dates: end: 20121022
  5. REBETOL [Suspect]
     Indication: CHRONIC HEPATITIS C
     Dosage: 1000 mg, qd
     Route: 048
     Dates: start: 20120515, end: 20120527
  6. REBETOL [Suspect]
     Dosage: 600 mg, qd
     Route: 048
     Dates: start: 20120528, end: 20120604
  7. REBETOL [Suspect]
     Dosage: 200 mg, qd
     Route: 048
     Dates: end: 20120909
  8. REBETOL [Suspect]
     Dosage: 400 mg, qd
     Route: 048
     Dates: start: 20120910, end: 20120923
  9. REBETOL [Suspect]
     Dosage: 200 mg, qd
     Route: 048
     Dates: start: 20120924, end: 20121022
  10. TELAVIC [Suspect]
     Indication: CHRONIC HEPATITIS C
     Dosage: 1500 mg, qd
     Route: 048
     Dates: start: 20120515, end: 20120603
  11. TELAVIC [Suspect]
     Dosage: 1000 mg, qd
     Route: 048
     Dates: start: 20120604, end: 20120611
  12. TELAVIC [Suspect]
     Dosage: 500 mg, qd
     Route: 048
     Dates: start: 20120704, end: 20120723
  13. TELAVIC [Suspect]
     Dosage: 750 mg, qd
     Route: 048
     Dates: start: 20120724, end: 20120806
  14. BAYASPIRIN [Concomitant]
     Indication: ANGINA PECTORIS
     Dosage: 100 mg, qd, formulation- POR
     Route: 048
  15. OLMETEC [Concomitant]
     Indication: HYPERTENSION
     Dosage: 20 mg, qd, Formulation- POR
     Route: 048
  16. OLMETEC [Concomitant]
     Indication: ANGINA PECTORIS
  17. ITOROL [Concomitant]
     Indication: HYPERTENSION
     Dosage: 40 mg, qd, formulation- POR
     Route: 048
  18. ITOROL [Concomitant]
     Indication: ANGINA PECTORIS
  19. AMLODIPINE [Concomitant]
     Indication: HYPERTENSION
     Dosage: 5 mg, qd, formulation POR
     Route: 048
  20. FEROTYM [Concomitant]
     Indication: IRON DEFICIENCY ANAEMIA
     Dosage: 100 mg, qd, formulation POR
     Route: 048
     Dates: end: 20120603
  21. PANALDINE [Concomitant]
     Indication: ANGINA PECTORIS
     Dosage: 200 mg, qd, formulation POR
     Route: 048
  22. CLARITIN REDITABS [Concomitant]
     Indication: PROPHYLAXIS
     Dosage: 10 mg, qd, formulation POR
     Route: 048
     Dates: end: 20120603
  23. LIVALO [Concomitant]
     Indication: HYPERLIPIDAEMIA
     Dosage: 2 mg, qd, formulation POR
     Route: 048
     Dates: end: 20120603
  24. EPADEL S [Concomitant]
     Indication: HYPERLIPIDAEMIA
     Dosage: 1800 mg, qd, formulation POR
     Route: 048
     Dates: end: 20120603
  25. SEFTAC [Concomitant]
     Indication: GASTRITIS
     Dosage: UNK, formulation POR
     Route: 048

REACTIONS (3)
  - Anaemia [Not Recovered/Not Resolved]
  - Anaemia [Not Recovered/Not Resolved]
  - Anaemia [Not Recovered/Not Resolved]
